FAERS Safety Report 4713344-0 (Version None)
Quarter: 2005Q3

REPORT INFORMATION
  Report Type: 
  Country: None (occurrence: None)
  Receive Date: 20050713
  Receipt Date: 20050704
  Transmission Date: 20060218
  Serious: Yes (Hospitalization)
  Sender: FDA-Public Use
  Company Number: FR-GLAXOSMITHKLINE-B0387271A

PATIENT
  Age: 29 Month
  Sex: Male
  Weight: 10.8 kg

DRUGS (6)
  1. AUGMENTIN '125' [Suspect]
     Route: 048
     Dates: start: 20050608, end: 20050609
  2. IMODIUM [Suspect]
     Indication: GASTROENTERITIS
     Route: 048
     Dates: start: 20050604, end: 20050609
  3. MUCOMYST [Concomitant]
     Indication: PRODUCTIVE COUGH
     Route: 065
     Dates: start: 20050601
  4. SMECTA [Concomitant]
     Indication: GASTROENTERITIS
     Dosage: 1UNIT PER DAY
     Route: 065
     Dates: start: 20050604, end: 20050604
  5. ULTRA LEVURE [Concomitant]
     Indication: GASTROENTERITIS
     Route: 048
     Dates: start: 20050604, end: 20050605
  6. DOLIPRANE [Concomitant]
     Indication: HYPERTHERMIA
     Route: 048
     Dates: start: 20050607, end: 20050609

REACTIONS (11)
  - ABDOMINAL DISTENSION [None]
  - ABDOMINAL PAIN [None]
  - ANOREXIA [None]
  - ASTHENIA [None]
  - DIARRHOEA [None]
  - DRUG INTERACTION [None]
  - LYMPHADENOPATHY [None]
  - NAUSEA [None]
  - PHARYNGOLARYNGEAL PAIN [None]
  - PYREXIA [None]
  - VOMITING [None]
